FAERS Safety Report 7897163-2 (Version None)
Quarter: 2011Q4

REPORT INFORMATION
  Report Type: 
  Country: None (occurrence: None)
  Receive Date: 20111107
  Receipt Date: 20111026
  Transmission Date: 20120403
  Serious: Yes (Hospitalization)
  Sender: FDA-Public Use
  Company Number: HK-ELI_LILLY_AND_COMPANY-HK200910002044

PATIENT
  Age: 17 Year
  Sex: Male

DRUGS (2)
  1. RISPERIDONE [Concomitant]
     Dosage: 4 MG, DAILY (1/D)
     Route: 065
     Dates: start: 20080807, end: 20080901
  2. ZYPREXA [Suspect]
     Indication: SCHIZOPHRENIA
     Dosage: 10 MG, DAILY (1/D)
     Route: 065
     Dates: start: 20080919, end: 20081001

REACTIONS (3)
  - SPLENOMEGALY [None]
  - HEPATOTOXICITY [None]
  - DIARRHOEA [None]
